FAERS Safety Report 8767431 (Version 1)
Quarter: 2012Q4

REPORT INFORMATION
  Report Type: Report from Study
  Country: CA (occurrence: CA)
  Receive Date: 20120904
  Receipt Date: 20120904
  Transmission Date: 20130627
  Serious: No
  Sender: FDA-Public Use
  Company Number: CA-JNJFOC-20120813318

PATIENT
  Sex: Female
  Weight: 78 kg

DRUGS (12)
  1. REMICADE [Suspect]
     Indication: CROHN^S DISEASE
     Route: 042
     Dates: start: 20100827
  2. METHOTREXATE [Suspect]
     Indication: PRODUCT USED FOR UNKNOWN INDICATION
     Route: 065
  3. ACIDOPHILUS [Concomitant]
     Route: 065
  4. PROGESTERONE [Concomitant]
     Route: 065
  5. UNKNOWN MEDICATION [Concomitant]
     Route: 065
  6. VITAMIN D [Concomitant]
     Route: 065
  7. VITAMIN B [Concomitant]
     Route: 065
  8. VITAMIN C [Concomitant]
     Route: 065
  9. OMEGA 3 [Concomitant]
     Route: 065
  10. GLUCOSAMINE [Concomitant]
  11. FOLIC ACID [Concomitant]
  12. FOSAMAX [Concomitant]
     Route: 065

REACTIONS (2)
  - Fungal infection [Not Recovered/Not Resolved]
  - Alopecia [Unknown]
